FAERS Safety Report 24266500 (Version 1)
Quarter: 2024Q3

REPORT INFORMATION
  Report Type: Spontaneous
  Country: US (occurrence: US)
  Receive Date: 20240830
  Receipt Date: 20240830
  Transmission Date: 20241016
  Serious: No
  Sender: CIPLA
  Company Number: US-CIPLA LTD.-2024US05057

PATIENT

DRUGS (2)
  1. ICATIBANT [Suspect]
     Active Substance: ICATIBANT ACETATE
     Indication: Angioedema
     Dosage: UNK (REGULAR USER)
     Route: 065
  2. ICATIBANT [Suspect]
     Active Substance: ICATIBANT ACETATE
     Dosage: UNK, 30 MG/3 ML, PREFILLED SYRINGE
     Route: 065
     Dates: start: 20240514

REACTIONS (4)
  - Complement factor abnormal [Unknown]
  - Off label use [Unknown]
  - Device difficult to use [Unknown]
  - Needle issue [Unknown]

NARRATIVE: CASE EVENT DATE: 20240514
